FAERS Safety Report 21808767 (Version 1)
Quarter: 2023Q1

REPORT INFORMATION
  Report Type: Spontaneous
  Country: US (occurrence: None)
  Receive Date: 20230103
  Receipt Date: 20230103
  Transmission Date: 20230417
  Serious: No
  Sender: FDA-Public Use
  Company Number: 2022A406927

PATIENT
  Sex: Male
  Weight: 127 kg

DRUGS (1)
  1. SYMBICORT [Suspect]
     Active Substance: BUDESONIDE\FORMOTEROL FUMARATE DIHYDRATE
     Indication: Chronic obstructive pulmonary disease
     Dosage: 160 MCG, INHALER, 2 PUFFS TWO TIMES A DAY
     Route: 055

REACTIONS (3)
  - Dyspnoea [Unknown]
  - Product dose omission issue [Unknown]
  - Device malfunction [Unknown]
